FAERS Safety Report 18358691 (Version 1)
Quarter: 2020Q4

REPORT INFORMATION
  Report Type: Other
  Country: FR (occurrence: FR)
  Receive Date: 20201008
  Receipt Date: 20201008
  Transmission Date: 20210114
  Serious: Yes (Hospitalization)
  Sender: FDA-Public Use
  Company Number: FR-CADILA HEALTHCARE LIMITED-FR-ZYDUS-056840

PATIENT

DRUGS (5)
  1. GABAPENTINE [Suspect]
     Active Substance: GABAPENTIN
     Indication: MEDICATION ERROR
     Dosage: 300 MILLIGRAM
     Route: 048
     Dates: start: 20200906, end: 20200906
  2. SERESTA [Suspect]
     Active Substance: OXAZEPAM
     Indication: MEDICATION ERROR
     Dosage: 50 MILLIGRAM
     Route: 048
     Dates: start: 20200906, end: 20200906
  3. MIANSERINE [MIANSERIN] [Suspect]
     Active Substance: MIANSERIN HYDROCHLORIDE
     Indication: MEDICATION ERROR
     Dosage: 90 MILLIGRAM
     Route: 048
     Dates: start: 20200906, end: 20200906
  4. TIAPRIDE [Suspect]
     Active Substance: TIAPRIDE
     Indication: MEDICATION ERROR
     Dosage: 150 MILLIGRAM
     Route: 048
     Dates: start: 20200906, end: 20200906
  5. PARACETAMOL [Suspect]
     Active Substance: ACETAMINOPHEN
     Indication: MEDICATION ERROR
     Dosage: 1 GRAM
     Route: 048
     Dates: start: 20200906, end: 20200906

REACTIONS (3)
  - Pneumonia aspiration [Recovering/Resolving]
  - Confusional state [Recovering/Resolving]
  - Wrong patient received product [Recovered/Resolved]

NARRATIVE: CASE EVENT DATE: 20200906
